FAERS Safety Report 4318380-4 (Version None)
Quarter: 2004Q1

REPORT INFORMATION
  Report Type: 
  Country: None (occurrence: None)
  Receive Date: 20040315
  Receipt Date: 20040302
  Transmission Date: 20041129
  Serious: Yes (Hospitalization)
  Sender: FDA-Public Use
  Company Number: FR-JNJFOC-20040300711

PATIENT
  Age: 40 Year
  Sex: Male

DRUGS (6)
  1. REMICADE [Suspect]
     Indication: ANKYLOSING SPONDYLITIS
     Dosage: 500 MG, INTRAVENOUS
     Route: 042
     Dates: start: 20030707, end: 20031209
  2. OMEPRAZOLE [Concomitant]
  3. MYOLASTAN (TETRAZEPAM) [Concomitant]
  4. VIOXX [Concomitant]
  5. GELUPRANE (PARACETAMOL) [Concomitant]
  6. DURAGESIC [Concomitant]

REACTIONS (1)
  - BLISTER [None]
